FAERS Safety Report 7332519-8 (Version None)
Quarter: 2011Q1

REPORT INFORMATION
  Report Type: 
  Country: None (occurrence: None)
  Receive Date: 20110304
  Receipt Date: 20110207
  Transmission Date: 20110831
  Serious: Yes (Hospitalization)
  Sender: FDA-Public Use
  Company Number: PHEH2009US18510

PATIENT
  Sex: Male

DRUGS (18)
  1. POTASSIUM CHLORIDE [Concomitant]
     Dosage: 10 MG, BID
  2. METANX [Concomitant]
     Dosage: 1 DF, QD
  3. ZETIA [Concomitant]
     Dosage: 10 MG, QOD
  4. BACLOFEN [Concomitant]
     Dosage: 20 MG, QID
  5. EXTAVIA [Suspect]
     Indication: MULTIPLE SCLEROSIS
     Dosage: 0.25 UNK, EVERY OTHER DAY
     Route: 058
     Dates: start: 20091215
  6. FUROSEMIDE [Concomitant]
     Dosage: 40 MG, QD
  7. PROVIGIL [Concomitant]
     Dosage: 200 MG, BID
  8. LAMOTRIGINE [Concomitant]
     Dosage: 100 MG, BID
  9. FLUOXETINE [Concomitant]
     Dosage: 10 MG, QD
  10. PROTONIX [Concomitant]
     Dosage: 40 MG, QD
  11. CALCIUM WITH VITAMIN D [Concomitant]
     Dosage: 500 MG, QD
  12. SIMVASTATIN [Concomitant]
     Dosage: 40 MG, QOD
  13. ASA [Concomitant]
     Dosage: 325 MG, QD
  14. FISH OIL [Concomitant]
     Dosage: 1200 MG, TID
  15. ADVAIR DISKUS 100/50 [Concomitant]
     Dosage: 230/21 QHS
  16. SPIRIVA [Concomitant]
     Dosage: 2 PUFFS QD
  17. AMLODIPINE BESYLATE AND BENAZEPRIL HCL [Concomitant]
     Dosage: 5/20 QD
  18. OXYGEN THERAPY [Concomitant]
     Dosage: 20 L

REACTIONS (6)
  - INJECTION SITE PAIN [None]
  - COLITIS [None]
  - INJECTION SITE MASS [None]
  - MUSCULOSKELETAL STIFFNESS [None]
  - PAIN [None]
  - SENSORY DISTURBANCE [None]
